FAERS Safety Report 6878582-X (Version None)
Quarter: 2010Q3

REPORT INFORMATION
  Report Type: 
  Country: None (occurrence: None)
  Receive Date: 20100728
  Receipt Date: 20100721
  Transmission Date: 20110219
  Serious: Yes (Hospitalization)
  Sender: FDA-Public Use
  Company Number: A0815681A

PATIENT
  Age: 62 Year
  Sex: Male

DRUGS (1)
  1. ROSIGLITAZONE [Suspect]
     Indication: DIABETES MELLITUS
     Dosage: 4MG TWICE PER DAY
     Route: 048
     Dates: start: 19990101

REACTIONS (5)
  - ARTERIAL OCCLUSIVE DISEASE [None]
  - CATHETERISATION CARDIAC [None]
  - CORONARY ARTERY BYPASS [None]
  - HYPERTENSION [None]
  - MYOCARDIAL INFARCTION [None]
